FAERS Safety Report 6314108-7 (Version None)
Quarter: 2009Q3

REPORT INFORMATION
  Report Type: 
  Country: None (occurrence: None)
  Receive Date: 20090817
  Receipt Date: 20090805
  Transmission Date: 20100115
  Serious: Yes (Disabling, Other)
  Sender: FDA-Public Use
  Company Number: 2009AL005116

PATIENT
  Age: 12 Year
  Sex: Female

DRUGS (4)
  1. DIGOXIN [Suspect]
     Dosage: PO
     Route: 048
  2. MEGACE [Concomitant]
  3. COUMADIN [Concomitant]
  4. DEPO-PROVERA [Concomitant]

REACTIONS (7)
  - AMENORRHOEA [None]
  - BLINDNESS UNILATERAL [None]
  - EMBOLISM [None]
  - HAEMORRHAGE [None]
  - OVARIAN CYST [None]
  - RETINAL ARTERY OCCLUSION [None]
  - WEIGHT INCREASED [None]
